FAERS Safety Report 7877466-8 (Version None)
Quarter: 2011Q4

REPORT INFORMATION
  Report Type: 
  Country: None (occurrence: None)
  Receive Date: 20111031
  Receipt Date: 20111021
  Transmission Date: 20120403
  Serious: Yes (Other)
  Sender: FDA-Public Use
  Company Number: JP-PFIZER INC-2011256297

PATIENT
  Age: 81 Year
  Sex: Male
  Weight: 53.8 kg

DRUGS (7)
  1. LYRICA [Suspect]
     Dosage: 75 MG, 2X/DAY
     Route: 048
     Dates: start: 20110627, end: 20110808
  2. NITRODERM [Suspect]
     Indication: ANGINA PECTORIS
     Dosage: 25 MG, 1X/DAY
     Route: 061
  3. LYRICA [Suspect]
     Indication: PAIN
     Dosage: 75 MG, 1X/DAY
     Route: 048
     Dates: start: 20110623, end: 20110626
  4. DEPAS [Concomitant]
     Indication: ANXIETY
     Dosage: 0.5 MG, 1X/DAY
     Route: 048
  5. TICLOPIDINE HCL [Concomitant]
     Indication: ANGINA PECTORIS
     Dosage: 100 MG, 1X/DAY
     Route: 048
  6. GLYBURIDE [Concomitant]
     Indication: DIABETES MELLITUS
     Dosage: 1.25 MG, 1X/DAY
     Route: 048
  7. FLIVAS [Concomitant]
     Indication: BENIGN PROSTATIC HYPERPLASIA
     Dosage: 25 MG, 2X/DAY
     Route: 048

REACTIONS (2)
  - BRADYCARDIA [None]
  - BLOOD PRESSURE DECREASED [None]
